FAERS Safety Report 9403283 (Version 2)
Quarter: 2013Q3

REPORT INFORMATION
  Report Type: Spontaneous
  Country: JP (occurrence: None)
  Receive Date: 20130712
  Receipt Date: 20130802
  Transmission Date: 20140515
  Serious: Yes (Other)
  Sender: FDA-Public Use
  Company Number: JP-20130063

PATIENT
  Age: 5 Decade
  Sex: Male

DRUGS (1)
  1. LIPIDOL [Suspect]
     Indication: THERAPEUTIC EMBOLISATION
     Dosage: 1 IN 1 D
     Route: 013
     Dates: start: 201211, end: 201211

REACTIONS (2)
  - Duodenal stenosis [None]
  - Off label use [None]
